FAERS Safety Report 18797085 (Version 1)
Quarter: 2021Q1

REPORT INFORMATION
  Report Type: Spontaneous
  Country: US (occurrence: US)
  Receive Date: 20210128
  Receipt Date: 20210128
  Transmission Date: 20210419
  Serious: Yes (Other)
  Sender: FDA-Public Use
  Company Number: US-ASTRAZENECA-2021A010833

PATIENT
  Age: 1036 Month
  Sex: Male
  Weight: 89.4 kg

DRUGS (3)
  1. LYNPARZA [Suspect]
     Active Substance: OLAPARIB
     Indication: PROSTATE CANCER METASTATIC
     Route: 048
     Dates: start: 202012
  2. LYNPARZA [Suspect]
     Active Substance: OLAPARIB
     Indication: PROSTATE CANCER METASTATIC
     Route: 048
  3. LYNPARZA [Suspect]
     Active Substance: OLAPARIB
     Indication: PROSTATE CANCER METASTATIC
     Route: 048

REACTIONS (9)
  - Mass [Unknown]
  - Hypersomnia [Unknown]
  - Abdominal pain [Unknown]
  - Fatigue [Unknown]
  - Weight decreased [Unknown]
  - Depression [Unknown]
  - Decreased appetite [Unknown]
  - Hypophagia [Recovered/Resolved]
  - Somnolence [Unknown]

NARRATIVE: CASE EVENT DATE: 202012
